FAERS Safety Report 9682264 (Version 3)
Quarter: 2014Q1

REPORT INFORMATION
  Report Type: Report from Study
  Country: BE (occurrence: BE)
  Receive Date: 20131112
  Receipt Date: 20140327
  Transmission Date: 20141002
  Serious: Yes (Hospitalization)
  Sender: FDA-Public Use
  Company Number: BE-009507513-1311BEL002770

PATIENT
  Age: 32 Year
  Sex: Male

DRUGS (3)
  1. VICTRELIS [Suspect]
     Indication: HEPATITIS C
     Dosage: UNK UNK, TID
     Route: 048
     Dates: start: 20130820, end: 20131009
  2. RIBAVIRIN [Suspect]
     Indication: HEPATITIS C
     Dosage: UNK, BID
     Route: 048
     Dates: start: 20130820, end: 20131009
  3. INTERFERON (UNSPECIFIED) [Suspect]
     Indication: HEPATITIS C
     Dosage: 120 MICROGRAM, QW
     Route: 058
     Dates: start: 20130820, end: 20131007

REACTIONS (1)
  - Acute psychosis [Recovered/Resolved]
